FAERS Safety Report 9170452 (Version 1)
Quarter: 2013Q1

REPORT INFORMATION
  Report Type: Spontaneous
  Country: GB (occurrence: None)
  Receive Date: 20130311
  Receipt Date: 20130311
  Transmission Date: 20140127
  Serious: Yes (Hospitalization)
  Sender: FDA-Public Use
  Company Number: AUR-APL-2013-01986

PATIENT
  Age: 71 Year
  Sex: Female

DRUGS (1)
  1. CEFALEXIN [Suspect]
     Indication: URINARY TRACT INFECTION
     Route: 048
     Dates: start: 20130118

REACTIONS (2)
  - Jaundice cholestatic [None]
  - Liver function test abnormal [None]
